FAERS Safety Report 5417331-9 (Version None)
Quarter: 2007Q3

REPORT INFORMATION
  Report Type: 
  Country: None (occurrence: None)
  Receive Date: 20070718
  Receipt Date: 20060524
  Transmission Date: 20080115
  Serious: Yes (Other)
  Sender: FDA-Public Use
  Company Number: 2005041208

PATIENT
  Sex: Male

DRUGS (2)
  1. CELEBREX [Suspect]
     Indication: PAIN
     Dosage: 400 MG (200 MG, 2 IN 1 D)
     Dates: start: 20011220
  2. BEXTRA [Concomitant]

REACTIONS (4)
  - CARDIAC FAILURE CONGESTIVE [None]
  - DEPRESSION [None]
  - MYOCARDIAL INFARCTION [None]
  - TRANSIENT ISCHAEMIC ATTACK [None]
